FAERS Safety Report 8532931-5 (Version None)
Quarter: 2012Q3

REPORT INFORMATION
  Report Type: 
  Country: None (occurrence: None)
  Receive Date: 20120724
  Receipt Date: 20120720
  Transmission Date: 20120928
  Serious: Yes (Other)
  Sender: FDA-Public Use
  Company Number: US-AMGEN-USASP2012045409

PATIENT
  Sex: Female

DRUGS (1)
  1. ENBREL [Suspect]
     Indication: RHEUMATOID ARTHRITIS
     Dosage: 50 MG, QWK
     Dates: start: 20060101

REACTIONS (6)
  - RHEUMATOID ARTHRITIS [None]
  - DELIRIUM [None]
  - MEMORY IMPAIRMENT [None]
  - ABNORMAL BEHAVIOUR [None]
  - COGNITIVE DISORDER [None]
  - NO THERAPEUTIC RESPONSE [None]
